FAERS Safety Report 25808576 (Version 1)
Quarter: 2025Q3

REPORT INFORMATION
  Report Type: Spontaneous
  Country: US (occurrence: None)
  Receive Date: 20250915
  Receipt Date: 20250915
  Transmission Date: 20251021
  Serious: No
  Sender: FDA-CTU
  Company Number: None

PATIENT
  Age: 61 Year
  Sex: Female
  Weight: 74.25 kg

DRUGS (5)
  1. VIVITROL [Suspect]
     Active Substance: NALTREXONE
     Indication: Alcoholism
     Dosage: OTHER QUANTITY : 1 INJECTION(S);?OTHER FREQUENCY : 1 PER MONTH;?OTHER ROUTE : INJECTION INTO THE BUTTOX;?
     Route: 050
     Dates: start: 20250913
  2. PROZAC [Concomitant]
     Active Substance: FLUOXETINE HYDROCHLORIDE
  3. WELLBUTRIN [Concomitant]
     Active Substance: BUPROPION HYDROCHLORIDE
  4. GABAPENTIN [Concomitant]
     Active Substance: GABAPENTIN
  5. PEPCID [Concomitant]
     Active Substance: FAMOTIDINE

REACTIONS (3)
  - Hepatitis C [None]
  - Discoloured vomit [None]
  - Hyperhidrosis [None]

NARRATIVE: CASE EVENT DATE: 20250914
